FAERS Safety Report 13548290 (Version 1)
Quarter: 2017Q2

REPORT INFORMATION
  Report Type: Spontaneous
  Country: US (occurrence: US)
  Receive Date: 20170516
  Receipt Date: 20170516
  Transmission Date: 20170830
  Serious: No
  Sender: FDA-Public Use
  Company Number: US-JNJFOC-20170316606

PATIENT
  Age: 86 Year
  Sex: Female
  Weight: 48.08 kg

DRUGS (2)
  1. MENS ROGAINE EXTRA STRENGTH [Suspect]
     Active Substance: MINOXIDIL
     Route: 061
  2. MENS ROGAINE EXTRA STRENGTH [Suspect]
     Active Substance: MINOXIDIL
     Indication: ALOPECIA
     Dosage: 1 DROPPER- 1 ML,1 TIME PER NIGHT
     Route: 061
     Dates: start: 20170312, end: 20170313

REACTIONS (2)
  - Product use issue [Unknown]
  - Product selection error [Unknown]

NARRATIVE: CASE EVENT DATE: 20170312
